FAERS Safety Report 19972386 (Version 1)
Quarter: 2021Q4

REPORT INFORMATION
  Report Type: Spontaneous
  Country: US (occurrence: US)
  Receive Date: 20211019
  Receipt Date: 20211019
  Transmission Date: 20220303
  Serious: No
  Sender: FDA-Public Use
  Company Number: US-HORIZON THERAPEUTICS-HZN-2021-002145

PATIENT
  Sex: Female

DRUGS (1)
  1. PROCYSBI [Suspect]
     Active Substance: CYSTEAMINE BITARTRATE
     Indication: Amino acid level abnormal
     Dosage: TAKE 525 MG (7 X 75MG CAPSULES) EVERY 12 HOURS. TOTAL DAILY DOSE IS
     Route: 065

REACTIONS (1)
  - Intentional product use issue [Unknown]
